FAERS Safety Report 18301763 (Version 1)
Quarter: 2020Q3

REPORT INFORMATION
  Report Type: Spontaneous
  Country: US (occurrence: US)
  Receive Date: 20200923
  Receipt Date: 20200923
  Transmission Date: 20201103
  Serious: Yes (Death)
  Sender: FDA-Public Use
  Company Number: US-PFIZER INC-2020213897

PATIENT
  Age: 25 Year
  Sex: Female

DRUGS (8)
  1. MEKTOVI [Suspect]
     Active Substance: BINIMETINIB
     Indication: BONE NEOPLASM
     Dosage: 45 MG, 2X/DAY (15 MG TABLET TAKE 3 TABLETS BY MOUTH EVERY 12 HOURS/45MG EVERY 12 HOURS)
     Route: 048
     Dates: start: 20190316, end: 202007
  2. BRAFTOVI [Suspect]
     Active Substance: ENCORAFENIB
     Indication: BONE NEOPLASM
     Dosage: 450 MG, DAILY (75 MG CAPSULES, TAKE 6 CAPSULES BY MOUTH DAILY)
     Route: 048
     Dates: start: 20190316, end: 202007
  3. MEKTOVI [Suspect]
     Active Substance: BINIMETINIB
     Indication: MALIGNANT MELANOMA
  4. MEKTOVI [Suspect]
     Active Substance: BINIMETINIB
     Indication: SKIN CANCER
  5. BRAFTOVI [Suspect]
     Active Substance: ENCORAFENIB
     Indication: MALIGNANT MELANOMA
  6. MEKTOVI [Suspect]
     Active Substance: BINIMETINIB
     Indication: SOFT TISSUE NEOPLASM
  7. BRAFTOVI [Suspect]
     Active Substance: ENCORAFENIB
     Indication: SOFT TISSUE NEOPLASM
  8. BRAFTOVI [Suspect]
     Active Substance: ENCORAFENIB
     Indication: SKIN CANCER

REACTIONS (1)
  - Death [Fatal]

NARRATIVE: CASE EVENT DATE: 2020
